FAERS Safety Report 17347753 (Version 2)
Quarter: 2020Q1

REPORT INFORMATION
  Report Type: Spontaneous
  Country: US (occurrence: US)
  Receive Date: 20200130
  Receipt Date: 20200217
  Transmission Date: 20200409
  Serious: Yes (Hospitalization)
  Sender: FDA-Public Use
  Company Number: US-SHIRE-US202003422

PATIENT
  Age: 67 Year
  Sex: Female
  Weight: 70.3 kg

DRUGS (1)
  1. GATTEX [Suspect]
     Active Substance: TEDUGLUTIDE\WATER
     Indication: PRODUCT USED FOR UNKNOWN INDICATION
     Dosage: 0.377 (UNIT UNKNOWN), 1X/DAY:QD
     Route: 058
     Dates: start: 20190215, end: 20200121

REACTIONS (2)
  - Respiratory disorder [Recovering/Resolving]
  - Asthma [Recovered/Resolved]

NARRATIVE: CASE EVENT DATE: 20200121
